FAERS Safety Report 4521245-6 (Version None)
Quarter: 2004Q4

REPORT INFORMATION
  Report Type: 
  Country: None (occurrence: None)
  Receive Date: 20041206
  Receipt Date: 20041117
  Transmission Date: 20050328
  Serious: No
  Sender: FDA-Public Use
  Company Number: R301137-3002-CDN

PATIENT
  Age: 50 Year
  Sex: Male
  Weight: 92.7 kg

DRUGS (2)
  1. E3810(RABEPRAZOLE) [Suspect]
     Dosage: 20 MG, ORAL
     Route: 048
     Dates: start: 20040922, end: 20041104
  2. NEXIUM [Concomitant]

REACTIONS (1)
  - MEMORY IMPAIRMENT [None]
